FAERS Safety Report 25757076 (Version 1)
Quarter: 2025Q3

REPORT INFORMATION
  Report Type: Spontaneous
  Country: EU (occurrence: EU)
  Receive Date: 20250903
  Receipt Date: 20250903
  Transmission Date: 20251021
  Serious: Yes (Other)
  Sender: TEVA
  Company Number: EU-TEVA-VS-3369149

PATIENT

DRUGS (3)
  1. NITRAZEPAM [Suspect]
     Active Substance: NITRAZEPAM
     Indication: Insomnia
     Route: 065
  2. TRAMADOL [Suspect]
     Active Substance: TRAMADOL
     Indication: Urinary tract infection
     Route: 065
  3. PENICILLIN [Suspect]
     Active Substance: PENICILLIN
     Indication: Urinary tract infection
     Route: 065

REACTIONS (6)
  - Drug dependence [Unknown]
  - Seizure [Unknown]
  - Product supply issue [Unknown]
  - Gastric ulcer [Unknown]
  - Post-acute COVID-19 syndrome [Unknown]
  - Abdominal pain upper [Unknown]
